FAERS Safety Report 4982538-1 (Version None)
Quarter: 2006Q2

REPORT INFORMATION
  Report Type: 
  Country: None (occurrence: None)
  Receive Date: 20060421
  Receipt Date: 20060410
  Transmission Date: 20061013
  Serious: Yes (Hospitalization)
  Sender: FDA-Public Use
  Company Number: 2006050288

PATIENT
  Age: 81 Year
  Sex: Male
  Weight: 77.1115 kg

DRUGS (8)
  1. SUTENT [Suspect]
     Indication: RENAL CELL CARCINOMA STAGE UNSPECIFIED
     Dosage: 50 MG (50 MG, 1 IN 1 D),  ORAL
     Route: 048
     Dates: start: 20060330
  2. IMURAN [Concomitant]
  3. POTASSIUM GLUCONATE (POTASSIUM GLUCONATE) [Concomitant]
  4. CALCIUM (CALCIUM) [Concomitant]
  5. VITAMIN D [Concomitant]
  6. HYDROCHLOROTHIAZIDE [Concomitant]
  7. LISINOPRIL [Concomitant]
  8. PREDNISONE TAB [Concomitant]

REACTIONS (6)
  - DIALYSIS [None]
  - DYSGEUSIA [None]
  - FATIGUE [None]
  - RENAL FAILURE [None]
  - RESPIRATORY DISTRESS [None]
  - SPEECH DISORDER [None]
